FAERS Safety Report 17256075 (Version 2)
Quarter: 2020Q1

REPORT INFORMATION
  Report Type: Spontaneous
  Country: US (occurrence: US)
  Receive Date: 20200110
  Receipt Date: 20200203
  Transmission Date: 20200409
  Serious: No
  Sender: FDA-Public Use
  Company Number: US-BIOGEN-2018BI00634074

PATIENT
  Age: 55 Year
  Sex: Female

DRUGS (3)
  1. VITAMIN D3 [Concomitant]
     Active Substance: CHOLECALCIFEROL
     Route: 065
  2. TECFIDERA [Suspect]
     Active Substance: DIMETHYL FUMARATE
     Indication: MULTIPLE SCLEROSIS
     Route: 050
     Dates: start: 20180822
  3. TECFIDERA [Suspect]
     Active Substance: DIMETHYL FUMARATE
     Route: 050
     Dates: start: 20180822, end: 20191027

REACTIONS (41)
  - Dizziness [Unknown]
  - Inappropriate schedule of product administration [Unknown]
  - Tremor [Unknown]
  - Limb discomfort [Unknown]
  - Stress [Unknown]
  - Rash [Recovered/Resolved]
  - Hot flush [Unknown]
  - Underdose [Unknown]
  - Arthritis [Not Recovered/Not Resolved]
  - Spinal column injury [Not Recovered/Not Resolved]
  - Headache [Unknown]
  - Gastrooesophageal reflux disease [Unknown]
  - Hypoaesthesia [Recovered/Resolved]
  - Loss of control of legs [Unknown]
  - Pruritus [Unknown]
  - Decreased appetite [Unknown]
  - Eye pain [Unknown]
  - Weight decreased [Unknown]
  - Feeling hot [Not Recovered/Not Resolved]
  - Nausea [Unknown]
  - Dyspepsia [Unknown]
  - Bone contusion [Not Recovered/Not Resolved]
  - Fatigue [Unknown]
  - Memory impairment [Unknown]
  - Cognitive disorder [Unknown]
  - Dyspnoea [Not Recovered/Not Resolved]
  - Eating disorder [Unknown]
  - Fall [Recovered/Resolved]
  - Flushing [Unknown]
  - Coccydynia [Not Recovered/Not Resolved]
  - Wound haemorrhage [Not Recovered/Not Resolved]
  - Blood count abnormal [Not Recovered/Not Resolved]
  - Contusion [Unknown]
  - Erythema [Recovered/Resolved]
  - Bladder disorder [Not Recovered/Not Resolved]
  - Somnolence [Not Recovered/Not Resolved]
  - Gastric disorder [Unknown]
  - Multiple sclerosis [Unknown]
  - Constipation [Unknown]
  - Balance disorder [Recovered/Resolved]
  - Multiple allergies [Unknown]

NARRATIVE: CASE EVENT DATE: 201809
